FAERS Safety Report 7044487-7 (Version None)
Quarter: 2010Q4

REPORT INFORMATION
  Report Type: 
  Country: None (occurrence: None)
  Receive Date: 20101013
  Receipt Date: 20101013
  Transmission Date: 20110411
  Serious: Yes (Hospitalization)
  Sender: FDA-Public Use
  Company Number: None

PATIENT
  Sex: Female
  Weight: 66 kg

DRUGS (17)
  1. DECITABINE 50MG IV/EISAI [Suspect]
     Indication: ACUTE MYELOID LEUKAEMIA
     Dosage: 35MG QD IV
     Route: 042
     Dates: start: 20100504, end: 20100507
  2. RAPAMYCIN 2MG PO/ WYETH [Suspect]
     Indication: ACUTE MYELOID LEUKAEMIA
     Dosage: 2MG QD PO
     Route: 048
     Dates: start: 20100509, end: 20100602
  3. BMX (FREE TEXT MEDICATION) [Concomitant]
  4. CALCIUM CITRATE/VITAMIN D3 [Concomitant]
  5. CIPRO [Concomitant]
  6. CITRACAL + D (CALCIUM CITRATE/VITAMIN D3) [Concomitant]
  7. DACOGEN [Concomitant]
  8. DENTA 5000 PLUS (SODIUM FLUORIDE) [Concomitant]
  9. DIFLUCAN [Concomitant]
  10. POTASSIUM CHLORIDE [Concomitant]
  11. METHOTREXATE [POWDER] [Concomitant]
  12. OMEPRAZOLE [Concomitant]
  13. PENTAMIDINE ISETHIONATE [Concomitant]
  14. PREDNISONE [Concomitant]
  15. RAPAMUNE [Concomitant]
  16. ACETAMINOPHEN [Concomitant]
  17. VALTREX [Concomitant]

REACTIONS (4)
  - BLOOD PRESSURE DECREASED [None]
  - FEBRILE NEUTROPENIA [None]
  - MUCOSAL INFLAMMATION [None]
  - THROMBOCYTOPENIA [None]
